FAERS Safety Report 16711227 (Version 2)
Quarter: 2021Q1

REPORT INFORMATION
  Report Type: Spontaneous
  Country: ES (occurrence: ES)
  Receive Date: 20190816
  Receipt Date: 20210324
  Transmission Date: 20210419
  Serious: Yes (Other)
  Sender: FDA-Public Use
  Company Number: PHHY2019ES188515

PATIENT
  Age: 30 Year
  Sex: Female

DRUGS (4)
  1. STELARA [Suspect]
     Active Substance: USTEKINUMAB
     Indication: CROHN^S DISEASE
     Dosage: UNK
     Route: 042
     Dates: start: 201708
  2. STELARA [Suspect]
     Active Substance: USTEKINUMAB
     Dosage: UNK
     Route: 042
     Dates: start: 201708
  3. STELARA [Suspect]
     Active Substance: USTEKINUMAB
     Dosage: 90 MG, (8 WEEK)
     Route: 058
  4. METHOTREXATE. [Suspect]
     Active Substance: METHOTREXATE
     Indication: PRODUCT USED FOR UNKNOWN INDICATION
     Dosage: 15 MG, QW
     Route: 058
     Dates: start: 201705

REACTIONS (4)
  - Escherichia bacteraemia [Unknown]
  - Off label use [Unknown]
  - Product use issue [Unknown]
  - Gastric stenosis [Recovering/Resolving]

NARRATIVE: CASE EVENT DATE: 201708
